APPROVED DRUG PRODUCT: ITRACONAZOLE
Active Ingredient: ITRACONAZOLE
Strength: 10MG/ML
Dosage Form/Route: SOLUTION;ORAL
Application: A205573 | Product #001 | TE Code: AA
Applicant: AMNEAL PHARMACEUTICALS
Approved: Oct 30, 2015 | RLD: No | RS: Yes | Type: RX